FAERS Safety Report 8797257 (Version 2)
Quarter: 2012Q4

REPORT INFORMATION
  Report Type: 
  Country: JP (occurrence: JP)
  Receive Date: 20120920
  Receipt Date: 20121015
  Transmission Date: 20130627
  Serious: Yes (Hospitalization)
  Sender: FDA-Public Use
  Company Number: JP-UCBSA-065746

PATIENT
  Age: 20 Year
  Sex: Female
  Weight: 52 kg

DRUGS (2)
  1. E KEPPRA [Suspect]
     Indication: EPILEPSY
     Route: 048
     Dates: start: 20120905, end: 20120905
  2. TEGRETOL [Concomitant]
     Indication: EPILEPSY
     Dosage: DAILY DOSE: 200 MG
     Route: 048
     Dates: start: 20101217

REACTIONS (1)
  - Anaphylactic reaction [Recovered/Resolved]
